FAERS Safety Report 5828106-0 (Version None)
Quarter: 2008Q3

REPORT INFORMATION
  Report Type: 
  Country: None (occurrence: None)
  Receive Date: 20080731
  Receipt Date: 20080728
  Transmission Date: 20090109
  Serious: Yes (Other)
  Sender: FDA-Public Use
  Company Number: US-RANBAXY-2008US-16692

PATIENT

DRUGS (1)
  1. CIPROFLOXACIN [Suspect]
     Indication: PROSTATE INFECTION
     Dosage: 500 MG, BID
     Route: 048
     Dates: start: 20080708, end: 20080717

REACTIONS (3)
  - CONTUSION [None]
  - JOINT INJURY [None]
  - TENDON RUPTURE [None]
